FAERS Safety Report 20199647 (Version 2)
Quarter: 2022Q3

REPORT INFORMATION
  Report Type: Spontaneous
  Country: US (occurrence: US)
  Receive Date: 20211217
  Receipt Date: 20220726
  Transmission Date: 20221026
  Serious: No
  Sender: FDA-Public Use
  Company Number: US-BAUSCH-BL-2021-040851

PATIENT
  Age: 83 Year
  Sex: Female
  Weight: 63.560 kg

DRUGS (1)
  1. ALAWAY PRESERVATIVE FREE [Suspect]
     Active Substance: KETOTIFEN FUMARATE
     Indication: Antiallergic therapy
     Route: 047
     Dates: start: 202111

REACTIONS (2)
  - Therapeutic product effect incomplete [Unknown]
  - Product packaging difficult to open [Unknown]
